FAERS Safety Report 18107792 (Version 3)
Quarter: 2020Q3

REPORT INFORMATION
  Report Type: Report from Study
  Country: US (occurrence: US)
  Receive Date: 20200803
  Receipt Date: 20200819
  Transmission Date: 20201103
  Serious: Yes (Death, Hospitalization)
  Sender: FDA-Public Use
  Company Number: US-ACTELION-A-US2020-207714

PATIENT
  Sex: Female
  Weight: 63.49 kg

DRUGS (1)
  1. OPSUMIT [Suspect]
     Active Substance: MACITENTAN
     Indication: PULMONARY ARTERIAL HYPERTENSION
     Dosage: 10 MG, QD
     Route: 048
     Dates: end: 202006

REACTIONS (4)
  - COVID-19 [Fatal]
  - Hypoxia [Fatal]
  - Fluid retention [Unknown]
  - Pneumonia [Fatal]
